FAERS Safety Report 7637415-4 (Version None)
Quarter: 2011Q3

REPORT INFORMATION
  Report Type: 
  Country: None (occurrence: None)
  Receive Date: 20110726
  Receipt Date: 20110724
  Transmission Date: 20111222
  Serious: No
  Sender: FDA-Public Use
  Company Number: US-PFIZER INC-2011167479

PATIENT
  Sex: Male
  Weight: 22.222 kg

DRUGS (2)
  1. EPIPEN [Concomitant]
     Indication: FOOD ALLERGY
     Dosage: UNK
  2. CHILDREN'S ADVIL [Suspect]
     Indication: PYREXIA
     Dosage: UNK
     Route: 048
     Dates: start: 20110723

REACTIONS (1)
  - URTICARIA [None]
